FAERS Safety Report 20505392 (Version 1)
Quarter: 2022Q1

REPORT INFORMATION
  Report Type: Spontaneous
  Country: US (occurrence: US)
  Receive Date: 20220223
  Receipt Date: 20220223
  Transmission Date: 20220423
  Serious: Yes (Hospitalization)
  Sender: FDA-Public Use
  Company Number: US-UNITED THERAPEUTICS-UNT-2022-003245

PATIENT
  Sex: Female

DRUGS (4)
  1. REMODULIN [Suspect]
     Active Substance: TREPROSTINIL
     Indication: Pulmonary arterial hypertension
     Dosage: UNK, CONTINUING
     Route: 041
     Dates: start: 20210518
  2. REMODULIN [Suspect]
     Active Substance: TREPROSTINIL
     Dosage: CONTINUING (RATE FROM 28 MILLILITERS PER 24 HOURS)
     Route: 041
  3. REMODULIN [Suspect]
     Active Substance: TREPROSTINIL
     Dosage: CONTINUING (RATE FROM 24 MILLILITERS PER 24 HOURS)
     Route: 041
  4. REMODULIN [Suspect]
     Active Substance: TREPROSTINIL
     Dosage: 0.0606 ?G/KG, CONTINUING
     Route: 041

REACTIONS (3)
  - White blood cell count decreased [Unknown]
  - Pain in extremity [Unknown]
  - Epistaxis [Unknown]
